FAERS Safety Report 9063249 (Version 2)
Quarter: 2013Q2

REPORT INFORMATION
  Report Type: Spontaneous
  Country: JP (occurrence: JP)
  Receive Date: 20130213
  Receipt Date: 20130404
  Transmission Date: 20140414
  Serious: Yes (Hospitalization)
  Sender: FDA-Public Use
  Company Number: JP-GLAXOSMITHKLINE-B0866200A

PATIENT
  Age: 84 Year
  Sex: Female

DRUGS (7)
  1. VALTREX [Suspect]
     Indication: ORAL HERPES
     Dosage: 1000MG THREE TIMES PER DAY
     Route: 048
     Dates: start: 20130111, end: 20130117
  2. ARICEPT [Concomitant]
     Route: 048
     Dates: end: 20130122
  3. SEROQUEL [Concomitant]
     Dosage: 25MG PER DAY
     Route: 048
     Dates: end: 20130122
  4. LENDORMIN [Concomitant]
     Dosage: .25MG PER DAY
     Route: 048
     Dates: end: 20130122
  5. SILECE [Concomitant]
     Route: 065
  6. CEROCRAL [Concomitant]
     Dosage: 20MG PER DAY
     Route: 048
     Dates: end: 20130122
  7. ROHYPNOL [Concomitant]
     Route: 048
     Dates: end: 20130122

REACTIONS (4)
  - Altered state of consciousness [Recovering/Resolving]
  - Depressed level of consciousness [Unknown]
  - Hypernatraemia [Recovering/Resolving]
  - Gait disturbance [Unknown]
